FAERS Safety Report 24984232 (Version 1)
Quarter: 2025Q1

REPORT INFORMATION
  Report Type: Spontaneous
  Country: AT (occurrence: AT)
  Receive Date: 20250219
  Receipt Date: 20250219
  Transmission Date: 20250408
  Serious: Yes (Hospitalization, Other)
  Sender: AMGEN
  Company Number: AT-AMGEN-AUTSP2025030155

PATIENT
  Age: 38 Year
  Sex: Female

DRUGS (15)
  1. ETANERCEPT [Suspect]
     Active Substance: ETANERCEPT
     Indication: Product used for unknown indication
     Route: 065
     Dates: start: 202006, end: 202009
  2. SKYRIZI [Suspect]
     Active Substance: RISANKIZUMAB-RZAA
     Indication: Psoriatic arthropathy
     Route: 058
     Dates: start: 202202, end: 202209
  3. HUMIRA [Suspect]
     Active Substance: ADALIMUMAB
     Indication: Psoriatic arthropathy
     Route: 058
     Dates: start: 201208, end: 201607
  4. IXEKIZUMAB [Suspect]
     Active Substance: IXEKIZUMAB
     Indication: Product used for unknown indication
     Route: 065
     Dates: start: 202012
  5. GUSELKUMAB [Suspect]
     Active Substance: GUSELKUMAB
     Indication: Product used for unknown indication
     Route: 065
     Dates: start: 201911, end: 202006
  6. GOLIMUMAB [Suspect]
     Active Substance: GOLIMUMAB
     Indication: Product used for unknown indication
     Route: 065
     Dates: start: 202301, end: 202304
  7. CERTOLIZUMAB [Suspect]
     Active Substance: CERTOLIZUMAB
     Indication: Product used for unknown indication
     Route: 065
     Dates: start: 202306, end: 202307
  8. ANAKINRA [Concomitant]
     Active Substance: ANAKINRA
     Route: 058
     Dates: end: 202311
  9. BIMEKIZUMAB [Concomitant]
     Active Substance: BIMEKIZUMAB
     Route: 065
  10. ISOTRETINOIN [Concomitant]
     Active Substance: ISOTRETINOIN
     Dates: start: 202410
  11. DEUCRAVACITINIB [Concomitant]
     Active Substance: DEUCRAVACITINIB
     Dates: start: 202310
  12. INFLIXIMAB [Concomitant]
     Active Substance: INFLIXIMAB
     Dates: end: 202309
  13. SECUKINUMAB [Concomitant]
     Active Substance: SECUKINUMAB
     Dates: start: 201607, end: 201911
  14. SPESOLIMAB [Concomitant]
     Active Substance: SPESOLIMAB
     Dates: end: 202305
  15. METHYLPREDNISOLONE [Concomitant]
     Active Substance: METHYLPREDNISOLONE
     Dates: end: 202303

REACTIONS (15)
  - Pyrexia [Unknown]
  - Arthritis [Unknown]
  - Dermatitis exfoliative generalised [Unknown]
  - Psoriatic arthropathy [Unknown]
  - Drug ineffective [Unknown]
  - Weight increased [Unknown]
  - Sacroiliitis [Unknown]
  - Spondylitis [Unknown]
  - Liver disorder [Unknown]
  - Breast swelling [Unknown]
  - Inflammatory pain [Unknown]
  - Psoriasis area severity index increased [Unknown]
  - Pustular psoriasis [Unknown]
  - Skin striae [Unknown]
  - Stress [Unknown]

NARRATIVE: CASE EVENT DATE: 20220101
